FAERS Safety Report 4953367-X (Version None)
Quarter: 2006Q1

REPORT INFORMATION
  Report Type: 
  Country: None (occurrence: None)
  Receive Date: 20060324
  Receipt Date: 20060228
  Transmission Date: 20060701
  Serious: Yes (Hospitalization)
  Sender: FDA-Public Use
  Company Number: ZA-SANOFI-SYNTHELABO-F01200600580

PATIENT
  Sex: Male

DRUGS (17)
  1. PRIMAQUINE [Suspect]
     Indication: MALARIA
     Route: 048
     Dates: start: 20060205, end: 20060218
  2. QUININE [Suspect]
     Indication: MALARIA
     Route: 042
     Dates: start: 20060101, end: 20060104
  3. QUININE [Suspect]
     Route: 048
     Dates: start: 20060105, end: 20060106
  4. QUININE [Suspect]
     Indication: PLASMODIUM FALCIPARUM INFECTION
     Route: 042
     Dates: start: 20060101, end: 20060104
  5. QUININE [Suspect]
     Route: 048
     Dates: start: 20060202, end: 20060206
  6. QUININE [Suspect]
     Route: 048
     Dates: start: 20060202, end: 20060206
  7. QUININE [Suspect]
     Route: 048
     Dates: start: 20060105, end: 20060106
  8. CEFTRIAXONE [Suspect]
     Indication: PNEUMONIA
     Route: 042
     Dates: start: 20060208
  9. DOXYCYCLINE [Suspect]
     Indication: MALARIA
     Route: 048
     Dates: start: 20060103, end: 20060108
  10. DOXYCYCLINE [Suspect]
     Route: 048
     Dates: start: 20060208, end: 20060214
  11. EMPAPAED [Concomitant]
  12. MYPRODOL [Concomitant]
     Route: 065
  13. PONSTAN [Concomitant]
     Route: 065
  14. ZOFRAN [Concomitant]
     Dosage: 2-4 MG Q6H PRN
     Route: 051
  15. VALOID [Concomitant]
  16. VOLTAREN [Concomitant]
     Dates: start: 20060202
  17. ATERAX [Concomitant]

REACTIONS (2)
  - NEPHRITIS INTERSTITIAL [None]
  - RENAL FAILURE [None]
